FAERS Safety Report 14959829 (Version 1)
Quarter: 2018Q2

REPORT INFORMATION
  Report Type: Spontaneous
  Country: US (occurrence: US)
  Receive Date: 20180531
  Receipt Date: 20180531
  Transmission Date: 20180711
  Serious: Yes (Other)
  Sender: FDA-Public Use
  Company Number: US-BIOGEN-2018BI00585521

PATIENT
  Sex: Female

DRUGS (1)
  1. AVONEX [Suspect]
     Active Substance: INTERFERON BETA-1A
     Indication: MULTIPLE SCLEROSIS
     Route: 065
     Dates: start: 20151109

REACTIONS (6)
  - Dry mouth [Unknown]
  - Hysterectomy [Unknown]
  - Cervix disorder [Unknown]
  - Fatigue [Unknown]
  - Post procedural complication [Unknown]
  - General symptom [Unknown]
